FAERS Safety Report 14885705 (Version 2)
Quarter: 2018Q2

REPORT INFORMATION
  Report Type: Spontaneous
  Country: US (occurrence: US)
  Receive Date: 20180511
  Receipt Date: 20180607
  Transmission Date: 20180711
  Serious: No
  Sender: FDA-Public Use
  Company Number: US-JNJFOC-20180420230

PATIENT
  Age: 50 Year
  Sex: Female
  Weight: 92.53 kg

DRUGS (10)
  1. TYLENOL [Concomitant]
     Active Substance: ACETAMINOPHEN
     Indication: PREMEDICATION
     Route: 048
     Dates: start: 20180204
  2. FLUTICASONE. [Concomitant]
     Active Substance: FLUTICASONE
     Dosage: USE 1 TO 2 SPRAYS IN EACH NOSTRIL
     Route: 045
     Dates: start: 20180404
  3. EVEKEO [Concomitant]
     Active Substance: AMPHETAMINE SULFATE
     Indication: ATTENTION DEFICIT/HYPERACTIVITY DISORDER
     Dosage: HALF TABLET DAILY
     Route: 048
     Dates: start: 20170929
  4. REMICADE [Suspect]
     Active Substance: INFLIXIMAB
     Indication: ANKYLOSING SPONDYLITIS
     Dosage: 250 ML NORMAL SALINE OVER 2 HOURS
     Route: 042
     Dates: start: 20180404
  5. GABAPENTIN. [Concomitant]
     Active Substance: GABAPENTIN
     Dosage: ONE IN THE AM AND 3 IN THE PM
     Route: 048
     Dates: start: 20170116
  6. ZYRTEC [Concomitant]
     Active Substance: CETIRIZINE HYDROCHLORIDE
     Dosage: AS NEEDED
     Route: 048
     Dates: start: 20170919
  7. DICLOFENAC SODIUM. [Concomitant]
     Active Substance: DICLOFENAC SODIUM
     Dosage: DELAYED RELEASE TABLET
     Route: 048
     Dates: start: 20180202
  8. BENADRYL [Concomitant]
     Active Substance: DIPHENHYDRAMINE HYDROCHLORIDE
     Indication: PREMEDICATION
     Route: 048
     Dates: start: 20180404
  9. ARMOUR THYROID [Concomitant]
     Active Substance: THYROID, PORCINE
     Indication: THYROID DISORDER
     Route: 048
     Dates: start: 20180418
  10. TRAZODONE HYDROCHLORIDE. [Concomitant]
     Active Substance: TRAZODONE HYDROCHLORIDE
     Indication: INSOMNIA
     Dosage: AS NECESSARY
     Route: 048
     Dates: start: 20170606

REACTIONS (4)
  - Anxiety [Recovered/Resolved]
  - Musculoskeletal pain [Unknown]
  - Musculoskeletal stiffness [Unknown]
  - Paraesthesia [Recovered/Resolved]

NARRATIVE: CASE EVENT DATE: 201804
